FAERS Safety Report 6341976-5 (Version None)
Quarter: 2009Q3

REPORT INFORMATION
  Report Type: 
  Country: None (occurrence: None)
  Receive Date: 20090904
  Receipt Date: 20090821
  Transmission Date: 20100115
  Serious: Yes (Death, Life-Threatening, Hospitalization)
  Sender: FDA-Public Use
  Company Number: PE-GENENTECH-288501

PATIENT
  Sex: Male

DRUGS (15)
  1. BLINDED BEVACIZUMAB [Suspect]
     Indication: DIFFUSE LARGE B-CELL LYMPHOMA
     Dosage: UNK
     Route: 042
     Dates: start: 20090422, end: 20090821
  2. CYCLOPHOSPHAMIDE [Suspect]
     Indication: DIFFUSE LARGE B-CELL LYMPHOMA
     Dosage: UNK
     Route: 042
     Dates: start: 20090422, end: 20090821
  3. DOXORUBICIN HCL [Suspect]
     Indication: DIFFUSE LARGE B-CELL LYMPHOMA
     Dosage: UNK
     Route: 042
     Dates: start: 20090422, end: 20090821
  4. BLINDED PLACEBO [Suspect]
     Indication: DIFFUSE LARGE B-CELL LYMPHOMA
     Dosage: UNK
     Route: 042
     Dates: start: 20090422, end: 20090821
  5. PREDNISONE [Suspect]
     Indication: DIFFUSE LARGE B-CELL LYMPHOMA
     Dosage: UNK
     Route: 042
     Dates: start: 20090422, end: 20090821
  6. BLINDED RITUXIMAB [Suspect]
     Indication: DIFFUSE LARGE B-CELL LYMPHOMA
     Dosage: UNK
     Route: 042
     Dates: start: 20090422, end: 20090821
  7. VINCRISTINE [Suspect]
     Indication: DIFFUSE LARGE B-CELL LYMPHOMA
     Dosage: UNK
     Route: 042
     Dates: start: 20090422, end: 20090821
  8. RITUXAN [Suspect]
     Indication: DIFFUSE LARGE B-CELL LYMPHOMA
     Dosage: 667 MG, QD
     Route: 042
     Dates: start: 20090716, end: 20090716
  9. CYCLOPHOSPHAMIDE [Suspect]
     Indication: DIFFUSE LARGE B-CELL LYMPHOMA
     Dosage: 1335 MG, QD
     Route: 042
     Dates: start: 20090716, end: 20090716
  10. DOXORUBICIN HCL [Suspect]
     Indication: DIFFUSE LARGE B-CELL LYMPHOMA
     Dosage: 89 MG, QD
     Route: 042
     Dates: start: 20090716, end: 20090716
  11. VINCRISTINE [Suspect]
     Indication: DIFFUSE LARGE B-CELL LYMPHOMA
     Dosage: 2 MG, QD
     Route: 042
     Dates: start: 20090716, end: 20090716
  12. PREDNISONE TAB [Suspect]
     Indication: DIFFUSE LARGE B-CELL LYMPHOMA
     Dosage: 100 MG, QD
     Route: 048
     Dates: start: 20090716, end: 20090716
  13. NIFEDIPINE [Concomitant]
     Indication: DRUG USE FOR UNKNOWN INDICATION
     Dosage: UNK
     Dates: start: 20090201, end: 20090803
  14. RANITIDINE [Concomitant]
     Indication: DRUG USE FOR UNKNOWN INDICATION
     Dosage: UNK
     Dates: start: 20090716, end: 20090731
  15. METOCLOPRAMIDE [Concomitant]
     Indication: DRUG USE FOR UNKNOWN INDICATION
     Dosage: UNK
     Dates: start: 20090716, end: 20090720

REACTIONS (2)
  - FEBRILE NEUTROPENIA [None]
  - RESPIRATORY FAILURE [None]
